FAERS Safety Report 23588269 (Version 1)
Quarter: 2024Q1

REPORT INFORMATION
  Report Type: Spontaneous
  Country: NL (occurrence: NL)
  Receive Date: 20240302
  Receipt Date: 20240302
  Transmission Date: 20240410
  Serious: Yes (Life-Threatening, Other)
  Sender: FDA-Public Use
  Company Number: NL-LRB-00945234

PATIENT
  Age: 50 Year
  Sex: Female
  Weight: 170 kg

DRUGS (2)
  1. FUROSEMIDE [Suspect]
     Active Substance: FUROSEMIDE
     Indication: Product used for unknown indication
     Dosage: 1 DOSAGE FORM
     Route: 065
     Dates: start: 20240120
  2. FOSFOMYCIN [Suspect]
     Active Substance: FOSFOMYCIN
     Indication: Urosepsis
     Dosage: 8 GRAM, 3 TIMES A DAY (3X PER DAG 8 GRAM INTRAVENEUS)
     Route: 042
     Dates: start: 20240125, end: 20240131

REACTIONS (1)
  - Hypokalaemia [Recovered/Resolved]
